FAERS Safety Report 6159022-5 (Version None)
Quarter: 2009Q2

REPORT INFORMATION
  Report Type: 
  Country: None (occurrence: None)
  Receive Date: 20090417
  Receipt Date: 20090407
  Transmission Date: 20091009
  Serious: Yes (Hospitalization, Other)
  Sender: FDA-Public Use
  Company Number: US-PFIZER INC-2009177659

PATIENT
  Sex: Female
  Weight: 82.54 kg

DRUGS (10)
  1. NAPROXEN [Suspect]
     Indication: RHEUMATOID ARTHRITIS
     Dosage: UNK
     Route: 048
     Dates: start: 20081022, end: 20090116
  2. BLINDED *PLACEBO [Suspect]
     Indication: RHEUMATOID ARTHRITIS
     Dosage: UNK
     Route: 048
     Dates: start: 20081022, end: 20090116
  3. BLINDED CELECOXIB [Suspect]
     Indication: RHEUMATOID ARTHRITIS
     Dosage: UNK
     Route: 048
     Dates: start: 20081022, end: 20090116
  4. IBUPROFEN [Suspect]
     Indication: RHEUMATOID ARTHRITIS
     Dosage: UNK
     Route: 048
     Dates: start: 20081022, end: 20090116
  5. NAPROXEN [Suspect]
     Dosage: UNK
     Route: 048
     Dates: start: 20081022, end: 20090116
  6. NEXIUM [Concomitant]
     Dosage: 40 MG, 2X/DAY
     Route: 048
     Dates: start: 20081022
  7. OS-CAL [Concomitant]
     Dosage: UNK
     Route: 048
     Dates: start: 20060101
  8. STOOL SOFTENER [Concomitant]
     Dosage: UNK
     Route: 048
     Dates: start: 20060101
  9. ASCORBIN [Concomitant]
     Dosage: UNK
     Route: 061
     Dates: start: 20080801
  10. ACETAMINOPHEN [Concomitant]
     Dosage: UNK
     Route: 048
     Dates: start: 20081104

REACTIONS (1)
  - ACUTE CORONARY SYNDROME [None]
